FAERS Safety Report 11239954 (Version 2)
Quarter: 2015Q3

REPORT INFORMATION
  Report Type: Spontaneous
  Country: IT (occurrence: IT)
  Receive Date: 20150706
  Receipt Date: 20150727
  Transmission Date: 20151125
  Serious: Yes (Hospitalization)
  Sender: FDA-Public Use
  Company Number: IT-JNJFOC-20150701644

PATIENT
  Age: 60 Year
  Sex: Male

DRUGS (4)
  1. REMICADE [Suspect]
     Active Substance: INFLIXIMAB
     Indication: ANKYLOSING SPONDYLITIS
     Dosage: CYCLIC
     Route: 042
     Dates: start: 20090101
  2. REMICADE [Suspect]
     Active Substance: INFLIXIMAB
     Indication: ANKYLOSING SPONDYLITIS
     Route: 042
     Dates: start: 20141029
  3. METHOTREXATE [Concomitant]
     Active Substance: METHOTREXATE
     Route: 030
     Dates: start: 2006
  4. FOLINA [Concomitant]
     Active Substance: FOLIC ACID
     Route: 065
     Dates: start: 2006

REACTIONS (1)
  - Adenocarcinoma of colon [Recovering/Resolving]

NARRATIVE: CASE EVENT DATE: 20141217
